FAERS Safety Report 13022123 (Version 1)
Quarter: 2016Q4

REPORT INFORMATION
  Report Type: Spontaneous
  Country: IT (occurrence: IT)
  Receive Date: 20161213
  Receipt Date: 20161213
  Transmission Date: 20170207
  Serious: Yes (Hospitalization)
  Sender: FDA-Public Use
  Company Number: PHHY2016IT127478

PATIENT
  Age: 33 Year
  Sex: Female
  Weight: 68 kg

DRUGS (3)
  1. VOTUBIA [Suspect]
     Active Substance: EVEROLIMUS
     Route: 065
  2. PERICAINA [Concomitant]
     Indication: AGGRESSION
     Dosage: 1 DROP PER DAY
     Route: 065
     Dates: start: 2007
  3. CARBAMAZEPINE. [Concomitant]
     Active Substance: CARBAMAZEPINE
     Indication: EPILEPSY
     Dosage: 500 MG, BID
     Route: 065
     Dates: start: 2006

REACTIONS (2)
  - Peritoneal haemorrhage [Recovered/Resolved]
  - Renal cyst ruptured [Recovered/Resolved]

NARRATIVE: CASE EVENT DATE: 20160121
